FAERS Safety Report 17813167 (Version 2)
Quarter: 2020Q2

REPORT INFORMATION
  Report Type: Spontaneous
  Country: US (occurrence: US)
  Receive Date: 20200521
  Receipt Date: 20200619
  Transmission Date: 20200714
  Serious: No
  Sender: FDA-Public Use
  Company Number: US-009507513-2005USA006689

PATIENT
  Age: 42 Year
  Sex: Male

DRUGS (1)
  1. PROPECIA [Suspect]
     Active Substance: FINASTERIDE
     Indication: LICHEN PLANOPILARIS
     Dosage: 1.25 MILLIGRAM, DAILY
     Route: 048

REACTIONS (1)
  - Sexual dysfunction [Unknown]
